FAERS Safety Report 24583451 (Version 1)
Quarter: 2024Q4

REPORT INFORMATION
  Report Type: Spontaneous
  Country: EU (occurrence: EU)
  Receive Date: 20241106
  Receipt Date: 20241106
  Transmission Date: 20250115
  Serious: Yes (Other)
  Sender: Harrow Health
  Company Number: EU-IMP-2024000916

PATIENT

DRUGS (6)
  1. DEXAMETHASONE\NEOMYCIN SULFATE\POLYMYXIN B SULFATE [Suspect]
     Active Substance: DEXAMETHASONE\NEOMYCIN SULFATE\POLYMYXIN B SULFATE
     Indication: Keratitis
     Route: 061
     Dates: start: 2019
  2. DEXAMETHASONE\TOBRAMYCIN [Suspect]
     Active Substance: DEXAMETHASONE\TOBRAMYCIN
     Indication: Keratitis
     Route: 061
     Dates: start: 2018
  3. TOBRAMYCIN [Suspect]
     Active Substance: TOBRAMYCIN\TOBRAMYCIN SULFATE
     Indication: Keratitis
     Dosage: AT BEDTIME
  4. OFLOXACIN [Suspect]
     Active Substance: OFLOXACIN
     Indication: Keratitis
     Dosage: FIVE TIMES A DAY
  5. CIPROFLOXACIN [Suspect]
     Active Substance: CIPROFLOXACIN
     Indication: Keratitis
     Route: 048
  6. PREDNISOLONE [Concomitant]
     Active Substance: PREDNISOLONE
     Indication: Keratitis
     Dosage: 60 MG DAILY DOSAGE
     Route: 048
     Dates: start: 2019, end: 2019

REACTIONS (3)
  - Mycobacterium chelonae infection [Recovered/Resolved]
  - Condition aggravated [Recovered/Resolved]
  - Contraindicated product administered [Unknown]

NARRATIVE: CASE EVENT DATE: 20190101
